FAERS Safety Report 23822485 (Version 1)
Quarter: 2024Q2

REPORT INFORMATION
  Report Type: Spontaneous
  Country: US (occurrence: US)
  Receive Date: 20240506
  Receipt Date: 20240506
  Transmission Date: 20240715
  Serious: No
  Sender: FDA-Public Use
  Company Number: US-SCPHARMACEUTICALS-2024-SCPH-US000096

PATIENT
  Sex: Female
  Weight: 117.91 kg

DRUGS (5)
  1. FUROSCIX [Suspect]
     Active Substance: FUROSEMIDE
     Indication: Fluid retention
     Dosage: 80 MG, SINGLE
     Route: 058
     Dates: start: 2024
  2. FUROSEMIDE [Concomitant]
     Active Substance: FUROSEMIDE
     Indication: Fluid retention
  3. VICTOZA [Concomitant]
     Active Substance: LIRAGLUTIDE
     Dosage: UNK
  4. CARVEDILOL [Concomitant]
     Active Substance: CARVEDILOL
     Dosage: UNK
  5. CARDIZEM [Concomitant]
     Active Substance: DILTIAZEM HYDROCHLORIDE
     Dosage: UNK

REACTIONS (1)
  - Drug ineffective [Recovered/Resolved]
